FAERS Safety Report 4612236-5 (Version None)
Quarter: 2005Q1

REPORT INFORMATION
  Report Type: 
  Country: None (occurrence: None)
  Receive Date: 20050316
  Receipt Date: 20050301
  Transmission Date: 20050727
  Serious: Yes (Death)
  Sender: FDA-Public Use
  Company Number: US_0503113783

PATIENT
  Age: 30 Year

DRUGS (3)
  1. FLUOXETINE HCL [Suspect]
     Route: 048
     Dates: end: 20030101
  2. ESCITALOPRAM OXALATE [Concomitant]
  3. LIOTHYRONINE SODIUM [Concomitant]

REACTIONS (1)
  - COMPLETED SUICIDE [None]
